FAERS Safety Report 11848179 (Version 4)
Quarter: 2016Q1

REPORT INFORMATION
  Report Type: Spontaneous
  Country: US (occurrence: US)
  Receive Date: 20151217
  Receipt Date: 20160129
  Transmission Date: 20160526
  Serious: Yes (Other)
  Sender: FDA-Public Use
  Company Number: GXBR2015US002747

PATIENT
  Sex: Male
  Weight: 113.38 kg

DRUGS (6)
  1. SEROQUEL [Concomitant]
     Active Substance: QUETIAPINE FUMARATE
     Indication: TOURETTE^S DISORDER
     Dosage: 37.5 MG, QHS
     Route: 065
     Dates: start: 2003
  2. BISOPROLOL FUMARATE TABLETS [Suspect]
     Active Substance: BISOPROLOL FUMARATE
     Indication: TACHYCARDIA
     Dosage: 1.25 MG, QD
     Route: 048
     Dates: start: 201510, end: 20151215
  3. PAXIL [Concomitant]
     Active Substance: PAROXETINE HYDROCHLORIDE
     Indication: PANIC DISORDER
     Dosage: 10 MG, TID
     Route: 065
     Dates: start: 1999
  4. ATIVAN [Concomitant]
     Active Substance: LORAZEPAM
     Indication: PANIC DISORDER
     Dosage: 3.5 MG, QD
     Route: 065
     Dates: start: 1999
  5. VALIUM [Concomitant]
     Active Substance: DIAZEPAM
     Indication: DRUG DEPENDENCE
     Dosage: 4 MG, QD
     Route: 065
     Dates: start: 2014
  6. ATIVAN [Concomitant]
     Active Substance: LORAZEPAM
     Indication: DRUG DEPENDENCE

REACTIONS (10)
  - Tachycardia [Recovered/Resolved]
  - Blood pressure increased [Recovered/Resolved]
  - Drug ineffective [Not Recovered/Not Resolved]
  - Chest pain [Recovered/Resolved]
  - Anxiety [Unknown]
  - Dizziness [Not Recovered/Not Resolved]
  - Drug withdrawal syndrome [Recovered/Resolved]
  - Dyspnoea [Unknown]
  - Haemodynamic instability [Unknown]
  - Pulse abnormal [Recovered/Resolved]
